FAERS Safety Report 6232279-8 (Version None)
Quarter: 2009Q2

REPORT INFORMATION
  Report Type: 
  Country: None (occurrence: None)
  Receive Date: 20090617
  Receipt Date: 20090603
  Transmission Date: 20091009
  Serious: Yes (Hospitalization)
  Sender: FDA-Public Use
  Company Number: SG-RANBAXY-2009RR-24745

PATIENT
  Age: 30 Year
  Sex: Female

DRUGS (1)
  1. CEFALEXIN [Suspect]
     Indication: UPPER RESPIRATORY TRACT INFECTION

REACTIONS (2)
  - STEVENS-JOHNSON SYNDROME [None]
  - URINARY TRACT INFECTION [None]
